FAERS Safety Report 10213219 (Version 2)
Quarter: 2014Q2

REPORT INFORMATION
  Report Type: Spontaneous
  Country: US (occurrence: US)
  Receive Date: 20140603
  Receipt Date: 20140612
  Transmission Date: 20141212
  Serious: Yes (Life-Threatening, Hospitalization, Disabling)
  Sender: FDA-Public Use
  Company Number: US-MERCK-1405USA014378

PATIENT
  Age: 55 Year
  Sex: Female

DRUGS (3)
  1. ZOLINZA [Suspect]
     Indication: NEOPLASM MALIGNANT
     Dosage: 300 MG, QD
     Route: 048
     Dates: start: 20140508, end: 20140511
  2. ZOLINZA [Suspect]
     Dosage: DOSE UNSPECIFIED
     Route: 048
     Dates: start: 20140520
  3. VOTRIENT [Concomitant]

REACTIONS (5)
  - Blood pressure increased [Recovered/Resolved]
  - Headache [Recovered/Resolved]
  - Vomiting [Recovered/Resolved]
  - Diarrhoea [Recovered/Resolved]
  - Weight decreased [Recovered/Resolved]
